FAERS Safety Report 17479244 (Version 1)
Quarter: 2020Q1

REPORT INFORMATION
  Report Type: Report from Study
  Country: CA (occurrence: CA)
  Receive Date: 20200228
  Receipt Date: 20200228
  Transmission Date: 20200409
  Serious: Yes (Hospitalization, Other)
  Sender: FDA-Public Use
  Company Number: CA-JNJFOC-20190132967

PATIENT
  Age: 48 Year
  Sex: Male
  Weight: 77.11 kg

DRUGS (4)
  1. ADVIL [Suspect]
     Active Substance: IBUPROFEN
     Indication: PRODUCT USED FOR UNKNOWN INDICATION
     Route: 065
  2. STELARA [Suspect]
     Active Substance: USTEKINUMAB
     Route: 042
     Dates: start: 20180219
  3. ENTOCORT [Concomitant]
     Active Substance: BUDESONIDE
     Indication: PRODUCT USED FOR UNKNOWN INDICATION
  4. STELARA [Suspect]
     Active Substance: USTEKINUMAB
     Indication: CROHN^S DISEASE
     Route: 058
     Dates: start: 20180219

REACTIONS (8)
  - Off label use [Unknown]
  - Renal impairment [Recovering/Resolving]
  - Gastrointestinal stoma complication [Recovering/Resolving]
  - Diarrhoea [Not Recovered/Not Resolved]
  - Product use issue [Unknown]
  - Nephrolithiasis [Recovered/Resolved]
  - Frequent bowel movements [Recovering/Resolving]
  - Anal incontinence [Recovered/Resolved]

NARRATIVE: CASE EVENT DATE: 20180219
